FAERS Safety Report 4708581-5 (Version None)
Quarter: 2005Q3

REPORT INFORMATION
  Report Type: 
  Country: None (occurrence: None)
  Receive Date: 20050706
  Receipt Date: 20050627
  Transmission Date: 20060218
  Serious: Yes (Hospitalization, Other)
  Sender: FDA-Public Use
  Company Number: 2005093793

PATIENT
  Sex: Male
  Weight: 79.3795 kg

DRUGS (9)
  1. CELEBREX [Suspect]
     Indication: ARTHRALGIA
     Dosage: ORAL
     Route: 048
  2. BEXTRA [Suspect]
     Indication: ARTHRALGIA
     Dosage: 40 MG (20 MG, 1 IN 1 D) ORAL
     Route: 048
  3. NEURONTIN [Suspect]
     Indication: PAIN
     Dosage: 3600 MG(600 MG, 1200 MG TID) ORAL
     Route: 048
  4. CYCLOBENZAPRINE HCL [Concomitant]
  5. LEXAPRO [Concomitant]
  6. AMITRIPTYLINE HCL [Concomitant]
  7. DOXAZOSIN [Concomitant]
  8. DICLOFENAC SODIUM [Concomitant]
  9. OXYCONTIN [Concomitant]

REACTIONS (8)
  - ABDOMINAL PAIN UPPER [None]
  - DRUG EFFECT DECREASED [None]
  - HERNIA REPAIR [None]
  - NEPHROLITHIASIS [None]
  - POST PROCEDURAL COMPLICATION [None]
  - SKIN INFECTION [None]
  - URINARY HESITATION [None]
  - URINARY RETENTION [None]
